FAERS Safety Report 19508208 (Version 1)
Quarter: 2021Q3

REPORT INFORMATION
  Report Type: Spontaneous
  Country: US (occurrence: US)
  Receive Date: 20210708
  Receipt Date: 20210708
  Transmission Date: 20211014
  Serious: Yes (Other)
  Sender: FDA-Public Use
  Company Number: US-PFIZER INC-2021376725

PATIENT
  Age: 78 Year
  Sex: Male

DRUGS (2)
  1. NORVASC [Suspect]
     Active Substance: AMLODIPINE BESYLATE
     Indication: BLOOD PRESSURE ABNORMAL
     Dosage: 10 MG (FOR 3?4 YEARS)
  2. NORVASC [Suspect]
     Active Substance: AMLODIPINE BESYLATE
     Dosage: 10 MG
     Dates: start: 202104

REACTIONS (7)
  - Blood pressure increased [Recovered/Resolved]
  - Poor quality product administered [Unknown]
  - Product quality issue [Unknown]
  - Headache [Unknown]
  - Dizziness [Unknown]
  - Palpitations [Unknown]
  - Illness [Unknown]
